FAERS Safety Report 22885250 (Version 2)
Quarter: 2023Q4

REPORT INFORMATION
  Report Type: Spontaneous
  Country: DE (occurrence: DE)
  Receive Date: 20230831
  Receipt Date: 20231107
  Transmission Date: 20240110
  Serious: Yes (Hospitalization)
  Sender: FDA-Public Use
  Company Number: DE-BIOGEN-2023BI01223435

PATIENT
  Age: 41 Year
  Sex: Female
  Weight: 89 kg

DRUGS (1)
  1. TYSABRI [Suspect]
     Active Substance: NATALIZUMAB
     Indication: Multiple sclerosis
     Route: 050
     Dates: start: 201905

REACTIONS (1)
  - Venous thrombosis [Not Recovered/Not Resolved]

NARRATIVE: CASE EVENT DATE: 20230708
